FAERS Safety Report 21377812 (Version 1)
Quarter: 2022Q3

REPORT INFORMATION
  Report Type: Report from Study
  Country: US (occurrence: US)
  Receive Date: 20220926
  Receipt Date: 20220926
  Transmission Date: 20221027
  Serious: Yes (Other)
  Sender: FDA-Public Use
  Company Number: US-ABBVIE-4130424

PATIENT
  Sex: Male

DRUGS (2)
  1. HUMIRA [Suspect]
     Active Substance: ADALIMUMAB
     Indication: Crohn^s disease
     Dosage: CITRATE FREE
     Route: 058
     Dates: start: 20220918
  2. HUMIRA [Suspect]
     Active Substance: ADALIMUMAB
     Dosage: CITRATE FREE
     Route: 058
     Dates: end: 2022

REACTIONS (1)
  - Surgery [Unknown]

NARRATIVE: CASE EVENT DATE: 20220101
